FAERS Safety Report 22213605 (Version 1)
Quarter: 2023Q2

REPORT INFORMATION
  Report Type: Spontaneous
  Country: US (occurrence: US)
  Receive Date: 20230414
  Receipt Date: 20230414
  Transmission Date: 20230722
  Serious: Yes (Disabling)
  Sender: FDA-Public Use
  Company Number: US-ELI_LILLY_AND_COMPANY-US202304005473

PATIENT
  Age: 72 Year
  Sex: Female

DRUGS (12)
  1. INSULIN LISPRO JUNIOR KWIKPEN [Suspect]
     Active Substance: INSULIN LISPRO
     Indication: Product used for unknown indication
     Dosage: 5.5 U, EACH MORNING
     Route: 065
  2. INSULIN LISPRO JUNIOR KWIKPEN [Suspect]
     Active Substance: INSULIN LISPRO
     Indication: Product used for unknown indication
     Dosage: 5.5 U, EACH MORNING
     Route: 065
  3. INSULIN LISPRO JUNIOR KWIKPEN [Suspect]
     Active Substance: INSULIN LISPRO
     Dosage: 6 U, DAILY (LUNCH)
     Route: 065
  4. INSULIN LISPRO JUNIOR KWIKPEN [Suspect]
     Active Substance: INSULIN LISPRO
     Dosage: 6 U, DAILY (LUNCH)
     Route: 065
  5. INSULIN LISPRO JUNIOR KWIKPEN [Suspect]
     Active Substance: INSULIN LISPRO
     Dosage: 10 U, EACH EVENING (AT NIGHT)
     Route: 065
  6. INSULIN LISPRO JUNIOR KWIKPEN [Suspect]
     Active Substance: INSULIN LISPRO
     Dosage: 10 U, EACH EVENING (AT NIGHT)
     Route: 065
  7. INSULIN LISPRO JUNIOR KWIKPEN [Suspect]
     Active Substance: INSULIN LISPRO
     Dosage: 5.5 U, EACH MORNING
     Route: 065
  8. INSULIN LISPRO JUNIOR KWIKPEN [Suspect]
     Active Substance: INSULIN LISPRO
     Dosage: 5.5 U, EACH MORNING
     Route: 065
  9. INSULIN LISPRO JUNIOR KWIKPEN [Suspect]
     Active Substance: INSULIN LISPRO
     Dosage: 6 U, DAILY (LUNCH)
     Route: 065
  10. INSULIN LISPRO JUNIOR KWIKPEN [Suspect]
     Active Substance: INSULIN LISPRO
     Dosage: 6 U, DAILY (LUNCH)
     Route: 065
  11. INSULIN LISPRO JUNIOR KWIKPEN [Suspect]
     Active Substance: INSULIN LISPRO
     Dosage: 10 U, EACH EVENING (AT NIGHT)
     Route: 065
  12. INSULIN LISPRO JUNIOR KWIKPEN [Suspect]
     Active Substance: INSULIN LISPRO
     Dosage: 10 U, EACH EVENING (AT NIGHT)
     Route: 065

REACTIONS (3)
  - Blindness unilateral [Unknown]
  - Blood glucose increased [Unknown]
  - Injury associated with device [Unknown]

NARRATIVE: CASE EVENT DATE: 20230410
